FAERS Safety Report 10144188 (Version 1)
Quarter: 2014Q2

REPORT INFORMATION
  Report Type: Spontaneous
  Country: GB (occurrence: GB)
  Receive Date: 20140430
  Receipt Date: 20140430
  Transmission Date: 20141212
  Serious: Yes (Other)
  Sender: FDA-Public Use
  Company Number: GB-TEVA-476460ISR

PATIENT
  Age: 29 Year
  Sex: Female
  Weight: 76.2 kg

DRUGS (3)
  1. PROPRANOLOL [Suspect]
     Indication: HEMIPLEGIC MIGRAINE
     Dosage: 80 MILLIGRAM DAILY;
     Route: 048
     Dates: start: 20131201, end: 20140401
  2. PROZAC [Concomitant]
     Dosage: TAKEN FOR YEARS
  3. AMITRIPTYLINE [Concomitant]
     Dosage: TAKEN FOR YEARS

REACTIONS (1)
  - Weight increased [Recovering/Resolving]
